FAERS Safety Report 8519020-0 (Version None)
Quarter: 2012Q3

REPORT INFORMATION
  Report Type: 
  Country: None (occurrence: None)
  Receive Date: 20120718
  Receipt Date: 20120710
  Transmission Date: 20120928
  Serious: Yes (Hospitalization)
  Sender: FDA-Public Use
  Company Number: PHHY2012FR060376

PATIENT
  Age: 25 Year
  Sex: Female

DRUGS (6)
  1. ETHAMBUTOL HYDROCHLORIDE [Concomitant]
  2. OFLOXACIN [Concomitant]
  3. RIFAMPICIN [Suspect]
     Indication: PULMONARY TUBERCULOSIS
  4. AZATHIOPRINE [Interacting]
     Indication: LIVER TRANSPLANT
  5. CYCLOSPORINE [Interacting]
     Indication: LIVER TRANSPLANT
  6. PREDNISOLONE [Interacting]
     Indication: LIVER TRANSPLANT

REACTIONS (3)
  - LIVER TRANSPLANT REJECTION [None]
  - DRUG INTERACTION [None]
  - IMMUNOSUPPRESSANT DRUG LEVEL DECREASED [None]
